FAERS Safety Report 9631649 (Version 3)
Quarter: 2013Q4

REPORT INFORMATION
  Report Type: Spontaneous
  Country: US (occurrence: US)
  Receive Date: 20131018
  Receipt Date: 20131106
  Transmission Date: 20140711
  Serious: No
  Sender: FDA-Public Use
  Company Number: US-PFIZER INC-2013271192

PATIENT
  Age: 59 Year
  Sex: Male
  Weight: 81.18 kg

DRUGS (16)
  1. LYRICA [Suspect]
     Indication: NEURALGIA
     Dosage: 75 MG, 2X/DAY
     Route: 048
     Dates: start: 20130913, end: 20130916
  2. LYRICA [Suspect]
     Indication: DIABETIC NEUROPATHY
  3. LYRICA [Suspect]
     Indication: FIBROMYALGIA
  4. PLAVIX [Concomitant]
     Indication: CORONARY ARTERY BYPASS
     Dosage: 75 MG 1TAB, DAILY
     Route: 048
  5. LASIX [Concomitant]
     Dosage: 40 MG, DAILY
     Route: 048
  6. PHENERGAN [Concomitant]
     Dosage: 25 MG, DAILY
     Route: 048
  7. WARFARIN [Concomitant]
     Indication: CORONARY ARTERY BYPASS
     Dosage: 5 MG, DAILY
     Route: 048
     Dates: start: 20130630
  8. PRAVASTATIN [Concomitant]
     Indication: HYPERLIPIDAEMIA
     Dosage: 40 MG 1TAB, QHS
     Route: 048
  9. NITROSTAT [Concomitant]
     Dosage: 0.4 MG, UNK
     Route: 060
  10. VENTOLIN HFA [Concomitant]
     Dosage: 90 UG, UNK
     Route: 045
  11. DULERA [Concomitant]
     Dosage: 100 MCG- 5 MCG, 2 INH AND BID
     Route: 045
  12. CYMBALTA [Concomitant]
     Dosage: 60 MG, DAILY
     Route: 048
  13. DIAZEPAM [Concomitant]
     Dosage: 10 MG, UNK
     Route: 048
  14. HYDROCODONE ACETAMINOPHEN [Concomitant]
     Dosage: 10MG- 325 MG, UNK
     Route: 048
  15. METOPROLOL [Concomitant]
     Indication: HYPERTENSION
     Dosage: 25 MG, DAILY
     Route: 048
     Dates: start: 20130630
  16. MIRTAZAPINE [Concomitant]
     Indication: PAIN
     Dosage: 30 MG, BEDTIME
     Dates: start: 20130930

REACTIONS (2)
  - Rash [Recovering/Resolving]
  - Drug hypersensitivity [Unknown]
